FAERS Safety Report 9176642 (Version 1)
Quarter: 2013Q1

REPORT INFORMATION
  Report Type: Spontaneous
  Country: US (occurrence: None)
  Receive Date: 20130320
  Receipt Date: 20130320
  Transmission Date: 20140127
  Serious: No
  Sender: FDA-Public Use
  Company Number: None

PATIENT
  Age: 66 Year
  Sex: Male
  Weight: 118.2 kg

DRUGS (6)
  1. QSYMIA [Suspect]
  2. OMEPRAZOLE [Concomitant]
  3. LOSARTAN [Concomitant]
  4. HCTZ [Concomitant]
  5. PRAVASTATIN [Concomitant]
  6. METFORMIN [Suspect]

REACTIONS (1)
  - Fatigue [None]
